FAERS Safety Report 9321173 (Version 1)
Quarter: 2013Q2

REPORT INFORMATION
  Report Type: Spontaneous
  Country: NL (occurrence: None)
  Receive Date: 20130528
  Receipt Date: 20130528
  Transmission Date: 20140414
  Serious: Yes (Other)
  Sender: FDA-Public Use
  Company Number: 2013AP005404

PATIENT
  Age: 55 Year
  Sex: Male

DRUGS (3)
  1. PREDNISONE (PREDNISONE) [Suspect]
     Indication: RHEUMATOID ARTHRITIS
  2. AZATHIOPRINE [Suspect]
     Indication: RHEUMATOID ARTHRITIS
  3. LEFLUNOMIDE [Suspect]
     Indication: RHEUMATOID ARTHRITIS

REACTIONS (1)
  - Mycobacterial infection [None]
